FAERS Safety Report 18836607 (Version 1)
Quarter: 2021Q1

REPORT INFORMATION
  Report Type: Spontaneous
  Country: US (occurrence: US)
  Receive Date: 20210203
  Receipt Date: 20210203
  Transmission Date: 20210419
  Serious: Yes (Other)
  Sender: FDA-Public Use
  Company Number: US-HIKMA PHARMACEUTICALS USA INC.-US-H14001-21-00511

PATIENT
  Age: 67 Year
  Sex: Female

DRUGS (1)
  1. HEPARIN [Suspect]
     Active Substance: HEPARIN SODIUM
     Indication: ARTERIOVENOUS FISTULA THROMBOSIS
     Dosage: UNKNOWN
     Route: 065

REACTIONS (2)
  - Haematoma infection [Unknown]
  - Breast haematoma [Unknown]
